FAERS Safety Report 5477690-8 (Version None)
Quarter: 2007Q4

REPORT INFORMATION
  Report Type: 
  Country: None (occurrence: None)
  Receive Date: 20071003
  Receipt Date: 20071003
  Transmission Date: 20080405
  Serious: Yes (Other)
  Sender: FDA-Public Use
  Company Number: None

PATIENT
  Sex: Female
  Weight: 81.6475 kg

DRUGS (1)
  1. CHANTIX [Suspect]
     Indication: SMOKING CESSATION THERAPY
     Dosage: 2MG  BID  ORAL
     Route: 048

REACTIONS (4)
  - ABNORMAL DREAMS [None]
  - HALLUCINATION, VISUAL [None]
  - NAUSEA [None]
  - SLEEP DISORDER [None]
